FAERS Safety Report 22943595 (Version 2)
Quarter: 2023Q4

REPORT INFORMATION
  Report Type: Spontaneous
  Country: CN (occurrence: CN)
  Receive Date: 20230914
  Receipt Date: 20231118
  Transmission Date: 20240110
  Serious: Yes (Death, Other)
  Sender: FDA-Public Use
  Company Number: CN-JNJFOC-20230913113

PATIENT
  Age: 66 Year
  Sex: Male

DRUGS (1)
  1. DARZALEX [Suspect]
     Active Substance: DARATUMUMAB
     Indication: Plasma cell myeloma
     Dosage: 400MG/20ML/BOTTLE
     Route: 058

REACTIONS (3)
  - COVID-19 [Fatal]
  - Pneumonia [Fatal]
  - Sepsis [Fatal]
